FAERS Safety Report 22056399 (Version 1)
Quarter: 2023Q1

REPORT INFORMATION
  Report Type: Report from Study
  Country: NL (occurrence: NL)
  Receive Date: 20230302
  Receipt Date: 20230302
  Transmission Date: 20230418
  Serious: Yes (Hospitalization)
  Sender: FDA-Public Use
  Company Number: NL-JNJFOC-20230250081

PATIENT
  Age: 51 Year
  Sex: Male
  Weight: 39.952 kg

DRUGS (1)
  1. STELARA [Suspect]
     Active Substance: USTEKINUMAB
     Indication: Psoriasis
     Route: 058
     Dates: start: 20150919

REACTIONS (1)
  - Tension headache [Unknown]

NARRATIVE: CASE EVENT DATE: 20210123
